FAERS Safety Report 6969110-9 (Version None)
Quarter: 2010Q3

REPORT INFORMATION
  Report Type: 
  Country: None (occurrence: None)
  Receive Date: 20100907
  Receipt Date: 20100830
  Transmission Date: 20110219
  Serious: Yes (Other)
  Sender: FDA-Public Use
  Company Number: US-CUBIST-2010S1001350

PATIENT

DRUGS (1)
  1. CUBICIN [Suspect]
     Indication: INFECTION PROPHYLAXIS
     Route: 042

REACTIONS (1)
  - HAEMORRHAGE [None]
